FAERS Safety Report 25562605 (Version 1)
Quarter: 2025Q3

REPORT INFORMATION
  Report Type: Spontaneous
  Country: US (occurrence: US)
  Receive Date: 20250716
  Receipt Date: 20250716
  Transmission Date: 20251020
  Serious: No
  Sender: ABBVIE
  Company Number: US-ABBVIE-6362340

PATIENT
  Sex: Female

DRUGS (1)
  1. VYALEV [Suspect]
     Active Substance: FOSCARBIDOPA\FOSLEVODOPA
     Indication: Product used for unknown indication
     Route: 058

REACTIONS (6)
  - Pain in extremity [Unknown]
  - On and off phenomenon [Unknown]
  - Bradykinesia [Unknown]
  - Muscle rigidity [Unknown]
  - Brain fog [Unknown]
  - Muscle spasms [Unknown]
